FAERS Safety Report 13586262 (Version 1)
Quarter: 2017Q2

REPORT INFORMATION
  Report Type: Spontaneous
  Country: IR (occurrence: IR)
  Receive Date: 20170526
  Receipt Date: 20170526
  Transmission Date: 20170830
  Serious: Yes (Other)
  Sender: FDA-Public Use
  Company Number: IR-UNICHEM LABORATORIES LIMITED-UCM201705-000145

PATIENT

DRUGS (1)
  1. AMLODIPINE [Suspect]
     Active Substance: AMLODIPINE BESYLATE

REACTIONS (3)
  - Hypotension [Unknown]
  - Non-cardiogenic pulmonary oedema [Unknown]
  - Overdose [Unknown]
